FAERS Safety Report 8594188 (Version 3)
Quarter: 2013Q1

REPORT INFORMATION
  Report Type: Spontaneous
  Country: US (occurrence: US)
  Receive Date: 20120604
  Receipt Date: 20130208
  Transmission Date: 20140127
  Serious: Yes (Hospitalization, Other)
  Sender: FDA-Public Use
  Company Number: US-ELI_LILLY_AND_COMPANY-US201106002028

PATIENT
  Age: 80 None
  Sex: Female

DRUGS (12)
  1. FORTEO [Suspect]
     Indication: OSTEOPOROSIS
     Dosage: 20 UG, QD
     Route: 065
     Dates: start: 201010, end: 201209
  2. FORTEO [Suspect]
     Dosage: 20 UG, QD
     Route: 065
  3. FORTEO [Suspect]
     Dosage: 20 UG, QD
     Route: 065
  4. SYNTHROID [Concomitant]
     Dosage: 0.25 UNK, UNK
  5. CITALOPRAM [Concomitant]
     Dosage: 100 MG, UNK
  6. COREG [Concomitant]
  7. VISTARIL [Concomitant]
     Dosage: 20 MG, UNK
  8. OMEPRAZOLE [Concomitant]
     Dosage: 20 MG, UNK
  9. IRON [Concomitant]
  10. MIRALAX [Concomitant]
     Dosage: UNK, QD
  11. ASPIRIN [Concomitant]
     Dosage: UNK, QD
  12. CALCIUM [Concomitant]
     Dosage: 1200 MG, UNK

REACTIONS (7)
  - Tibia fracture [Unknown]
  - Fibula fracture [Recovering/Resolving]
  - Accident [Recovering/Resolving]
  - Fatigue [Recovered/Resolved]
  - Listless [Recovered/Resolved]
  - Asthenia [Recovered/Resolved]
  - Sinusitis [Unknown]
